FAERS Safety Report 4703903-3 (Version None)
Quarter: 2005Q2

REPORT INFORMATION
  Report Type: 
  Country: None (occurrence: None)
  Receive Date: 20050629
  Receipt Date: 20050629
  Transmission Date: 20051028
  Serious: Yes (Other)
  Sender: FDA-Public Use
  Company Number: None

PATIENT
  Sex: Male
  Weight: 35.8342 kg

DRUGS (7)
  1. TRILEPTAL [Suspect]
     Indication: FRONTAL LOBE EPILEPSY
     Dosage: 150MG   BID   ORAL;  600MG  BID  ORAL
     Route: 048
     Dates: start: 20050520, end: 20050527
  2. TRILEPTAL [Suspect]
     Indication: FRONTAL LOBE EPILEPSY
     Dosage: 150MG   BID   ORAL;  600MG  BID  ORAL
     Route: 048
     Dates: start: 20050610, end: 20050615
  3. PEPCID [Concomitant]
  4. CHEW VIT WITH MINERALS [Concomitant]
  5. PROTONIX [Concomitant]
  6. CALCIUM CARB/VIT D [Concomitant]
  7. FOSAMAX [Concomitant]

REACTIONS (5)
  - NASAL OEDEMA [None]
  - PYREXIA [None]
  - RASH GENERALISED [None]
  - RASH MACULAR [None]
  - SWELLING FACE [None]
